FAERS Safety Report 8246984-5 (Version None)
Quarter: 2012Q1

REPORT INFORMATION
  Report Type: 
  Country: None (occurrence: None)
  Receive Date: 20120330
  Receipt Date: 20120322
  Transmission Date: 20120608
  Serious: Yes (Other)
  Sender: FDA-Public Use
  Company Number: US-JNJFOC-20120309936

PATIENT

DRUGS (18)
  1. SODIUM CHLORIDE [Concomitant]
     Indication: FLUID REPLACEMENT
     Route: 042
  2. DOXORUBICIN HCL [Suspect]
     Indication: MALIGNANT LYMPHOID NEOPLASM
     Dosage: 24 HOUR CONTINUOUS IV INFUSION
     Route: 042
  3. VINCRISTINE [Suspect]
     Indication: MALIGNANT LYMPHOID NEOPLASM
     Route: 042
  4. FLUDARABINE PHOSPHATE [Suspect]
     Route: 042
  5. CYCLOPHOSPHAMIDE [Suspect]
     Dosage: DOSE-REDUCED REGIMEN
     Route: 042
  6. RITUXIMAB [Suspect]
     Indication: MALIGNANT LYMPHOID NEOPLASM
     Route: 042
  7. VINCRISTINE [Suspect]
     Dosage: 24 HOUR CONTINUOUS IV INFUSION
     Route: 042
  8. FILGRASTIM [Concomitant]
     Route: 058
  9. ACETAMINOPHEN [Concomitant]
     Indication: PREMEDICATION
     Route: 048
  10. DIPHENHYDRAMINE HCL [Concomitant]
     Indication: PREMEDICATION
     Route: 065
  11. ANTI-EMETIC [Concomitant]
     Indication: VOMITING
     Route: 065
  12. CYCLOPHOSPHAMIDE [Suspect]
     Indication: MALIGNANT LYMPHOID NEOPLASM
     Dosage: FINAL REGIMEN
     Route: 042
  13. FLUCONAZOLE [Concomitant]
     Indication: INFECTION PROPHYLAXIS
     Route: 065
  14. PREDNISONE [Suspect]
     Indication: MALIGNANT LYMPHOID NEOPLASM
     Route: 048
  15. ACYCLOVIR [Concomitant]
     Indication: INFECTION PROPHYLAXIS
     Route: 065
  16. FLUDARABINE PHOSPHATE [Suspect]
     Indication: MALIGNANT LYMPHOID NEOPLASM
     Route: 042
  17. TRIMETHOPRIM + SULFAMETHOXAZOLE [Concomitant]
     Indication: INFECTION PROPHYLAXIS
     Route: 065
  18. ETOPOSIDE [Suspect]
     Indication: MALIGNANT LYMPHOID NEOPLASM
     Dosage: 24 HOUR CONTINUOUS IV INFUSION
     Route: 042

REACTIONS (11)
  - THROMBOCYTOPENIA [None]
  - NEUROTOXICITY [None]
  - INFECTION [None]
  - TOXICITY TO VARIOUS AGENTS [None]
  - NEUTROPENIA [None]
  - LYMPHOCYTE COUNT DECREASED [None]
  - NEOPLASM PROGRESSION [None]
  - LYMPHOMA [None]
  - FEBRILE NEUTROPENIA [None]
  - GASTROINTESTINAL TOXICITY [None]
  - CARDIOTOXICITY [None]
